FAERS Safety Report 21890044 (Version 1)
Quarter: 2023Q1

REPORT INFORMATION
  Report Type: Spontaneous
  Country: US (occurrence: US)
  Receive Date: 20230120
  Receipt Date: 20230120
  Transmission Date: 20230417
  Serious: No
  Sender: FDA-Public Use
  Company Number: US-PFIZER INC-202300025397

PATIENT
  Age: 61 Year
  Sex: Female

DRUGS (1)
  1. METHOTREXATE SODIUM [Suspect]
     Active Substance: METHOTREXATE SODIUM
     Dosage: UNK

REACTIONS (6)
  - Rheumatoid nodule [Unknown]
  - Arthralgia [Unknown]
  - Joint swelling [Unknown]
  - Joint stiffness [Unknown]
  - Musculoskeletal stiffness [Unknown]
  - Joint range of motion decreased [Unknown]
